FAERS Safety Report 11198009 (Version 1)
Quarter: 2015Q2

REPORT INFORMATION
  Report Type: Report from Study
  Country: US (occurrence: US)
  Receive Date: 20150617
  Receipt Date: 20150617
  Transmission Date: 20150821
  Serious: No
  Sender: FDA-Public Use
  Company Number: US-CELGENEUS-USA-2015051466

PATIENT
  Age: 61 Year
  Sex: Female

DRUGS (1)
  1. REVLIMID [Suspect]
     Active Substance: LENALIDOMIDE
     Indication: PLASMA CELL MYELOMA
     Route: 048
     Dates: start: 201303, end: 201304

REACTIONS (3)
  - Rash pruritic [Recovered/Resolved]
  - Asthenia [Recovered/Resolved]
  - Immune system disorder [Recovered/Resolved]

NARRATIVE: CASE EVENT DATE: 201303
